FAERS Safety Report 11927958 (Version 1)
Quarter: 2016Q1

REPORT INFORMATION
  Report Type: Report from Study
  Country: CA (occurrence: CA)
  Receive Date: 20160119
  Receipt Date: 20160119
  Transmission Date: 20160526
  Serious: Yes (Hospitalization, Other)
  Sender: FDA-Public Use
  Company Number: CA-JNJFOC-20151118371

PATIENT
  Age: 44 Year
  Sex: Female
  Weight: 85 kg

DRUGS (2)
  1. REMICADE [Suspect]
     Active Substance: INFLIXIMAB
     Indication: ANKYLOSING SPONDYLITIS
     Route: 042
     Dates: start: 20151002
  2. REMICADE [Suspect]
     Active Substance: INFLIXIMAB
     Indication: ANKYLOSING SPONDYLITIS
     Route: 042
     Dates: start: 20160105

REACTIONS (4)
  - Bronchitis [Unknown]
  - Ovarian cyst [Unknown]
  - Ovarian cyst ruptured [Unknown]
  - Arthralgia [Unknown]

NARRATIVE: CASE EVENT DATE: 201511
